FAERS Safety Report 5672599-9 (Version None)
Quarter: 2008Q1

REPORT INFORMATION
  Report Type: 
  Country: None (occurrence: None)
  Receive Date: 20080317
  Receipt Date: 20080310
  Transmission Date: 20080703
  Serious: Yes (Death, Other)
  Sender: FDA-Public Use
  Company Number: 18455

PATIENT
  Age: 6 Year
  Sex: Male

DRUGS (20)
  1. CARBOPLATIN [Suspect]
     Indication: BURKITT'S LYMPHOMA
  2. METHOTREXATE [Suspect]
     Indication: BURKITT'S LYMPHOMA
  3. METHOTREXATE [Suspect]
     Indication: PROPHYLAXIS AGAINST GRAFT VERSUS HOST DISEASE
  4. METHOTREXATE [Suspect]
     Indication: BURKITT'S LYMPHOMA
  5. METHOTREXATE [Suspect]
     Indication: PROPHYLAXIS AGAINST GRAFT VERSUS HOST DISEASE
  6. METHOTREXATE [Suspect]
     Indication: BURKITT'S LYMPHOMA
  7. METHOTREXATE [Suspect]
     Indication: PROPHYLAXIS AGAINST GRAFT VERSUS HOST DISEASE
  8. VINCRISTINE [Suspect]
     Indication: BURKITT'S LYMPHOMA
  9. DOXORUBICIN HCL [Suspect]
     Indication: BURKITT'S LYMPHOMA
  10. ETOPOSIDE [Suspect]
     Indication: BURKITT'S LYMPHOMA
  11. IFOSFAMIDE [Suspect]
     Indication: BURKITT'S LYMPHOMA
  12. CYCLOPHOSPHAMIDE [Suspect]
     Indication: BURKITT'S LYMPHOMA
  13. CYCLOPHOSPHAMIDE [Suspect]
     Indication: BURKITT'S LYMPHOMA
  14. RITUXAN [Suspect]
     Indication: BURKITT'S LYMPHOMA
  15. CIDOFOVIR [Suspect]
     Indication: DIARRHOEA
  16. CYCLOSPORINE [Suspect]
     Indication: BURKITT'S LYMPHOMA
  17. CYCLOSPORINE [Suspect]
     Indication: PROPHYLAXIS AGAINST GRAFT VERSUS HOST DISEASE
  18. PREDNISONE TAB [Concomitant]
  19. RADIATION [Concomitant]
  20. CORTICOSTEROIDS [Concomitant]

REACTIONS (19)
  - ACUTE GRAFT VERSUS HOST DISEASE IN LIVER [None]
  - ACUTE GRAFT VERSUS HOST DISEASE IN SKIN [None]
  - ADENOVIRUS INFECTION [None]
  - APHASIA [None]
  - ATAXIA [None]
  - BURKITT'S LYMPHOMA RECURRENT [None]
  - COMA [None]
  - CSF PROTEIN INCREASED [None]
  - DEMYELINATION [None]
  - DIARRHOEA [None]
  - ENCEPHALOPATHY [None]
  - GLIOSIS [None]
  - MITOCHONDRIAL MYOPATHY [None]
  - MYOCLONUS [None]
  - RESPIRATORY DISORDER [None]
  - STEM CELL TRANSPLANT [None]
  - SUBDURAL EFFUSION [None]
  - VISION BLURRED [None]
  - VOMITING [None]
